FAERS Safety Report 17991237 (Version 3)
Quarter: 2020Q4

REPORT INFORMATION
  Report Type: Spontaneous
  Country: US (occurrence: US)
  Receive Date: 20200707
  Receipt Date: 20201223
  Transmission Date: 20210113
  Serious: Yes (Other)
  Sender: FDA-Public Use
  Company Number: US-COOPERSURGICAL, INC.-US-2020CPS001496

PATIENT
  Age: 42 Year
  Sex: Female
  Weight: 85.26 kg

DRUGS (3)
  1. LEVOTHYROXINE. [Concomitant]
     Active Substance: LEVOTHYROXINE
     Indication: THYROID DISORDER
     Dosage: UNK
     Route: 065
     Dates: start: 20200626
  2. ORAL CONTRACEPTIVE NOS [Concomitant]
     Active Substance: UNSPECIFIED INGREDIENT
     Indication: HAEMORRHAGE
     Dosage: UNK
     Route: 065
  3. PARAGARD T 380A [Suspect]
     Active Substance: COPPER
     Indication: CONTRACEPTION
     Dosage: UNK
     Route: 015
     Dates: start: 20200410, end: 20200617

REACTIONS (4)
  - Device expulsion [Recovered/Resolved]
  - Sensation of foreign body [Recovered/Resolved]
  - Dysfunctional uterine bleeding [Recovered/Resolved]
  - Intentional medical device removal by patient [Recovered/Resolved]

NARRATIVE: CASE EVENT DATE: 20200424
